FAERS Safety Report 15387996 (Version 1)
Quarter: 2018Q3

REPORT INFORMATION
  Report Type: Report from Study
  Country: None (occurrence: US)
  Receive Date: 20180915
  Receipt Date: 20180915
  Transmission Date: 20181010
  Serious: Yes (Other)
  Sender: FDA-Public Use
  Company Number: US-ABBVIE-18K-163-2397066-00

PATIENT
  Sex: Male
  Weight: 75.7 kg

DRUGS (2)
  1. VENCLEXTA [Suspect]
     Active Substance: VENETOCLAX
     Indication: PLASMA CELL MYELOMA
     Route: 048
     Dates: start: 20180419, end: 20180607
  2. VENCLEXTA [Suspect]
     Active Substance: VENETOCLAX
     Indication: REMISSION NOT ACHIEVED

REACTIONS (3)
  - Plasma cell myeloma [Not Recovered/Not Resolved]
  - Off label use [Not Recovered/Not Resolved]
  - Light chain analysis increased [Not Recovered/Not Resolved]

NARRATIVE: CASE EVENT DATE: 2018
